FAERS Safety Report 4711602-7 (Version None)
Quarter: 2005Q3

REPORT INFORMATION
  Report Type: 
  Country: None (occurrence: None)
  Receive Date: 20050708
  Receipt Date: 20050708
  Transmission Date: 20060218
  Serious: Yes (Other)
  Sender: FDA-Public Use
  Company Number: None

PATIENT
  Sex: Female
  Weight: 61.6892 kg

DRUGS (10)
  1. GEMCITABINE    100MG/ML     LILLY [Suspect]
     Indication: PANCREATIC CARCINOMA METASTATIC
     Dosage: 1000 MG/M2/20  DAY 1 + 15  INTRAVENOU
     Route: 042
     Dates: start: 20050629, end: 20050629
  2. CISPLATIN [Suspect]
     Indication: PANCREATIC CARCINOMA METASTATIC
     Dosage: 1000MG/M2/20    DAY 1 + 15    INTRAVENOU
     Route: 042
     Dates: start: 20050629, end: 20050629
  3. BEVACIZUMAB    25MG/ML      GENENTECH [Suspect]
     Indication: PANCREATIC CARCINOMA METASTATIC
     Dosage: 10MG/KG   DAY 1 + 15 INTRAVENOU
     Route: 042
     Dates: start: 20050629, end: 20050629
  4. FENTANYL [Concomitant]
  5. NEXIUM [Concomitant]
  6. M.V.I. [Concomitant]
  7. CALCIUM SUPPLEMENT [Concomitant]
  8. OMEGA-3 FISH OIL CAPS [Concomitant]
  9. SENNA [Concomitant]
  10. DSS [Concomitant]

REACTIONS (1)
  - DEEP VEIN THROMBOSIS [None]
